FAERS Safety Report 7466253-0 (Version None)
Quarter: 2011Q2

REPORT INFORMATION
  Report Type: 
  Country: None (occurrence: None)
  Receive Date: 20110509
  Receipt Date: 20100708
  Transmission Date: 20111010
  Serious: No
  Sender: FDA-Public Use
  Company Number: US-ALEXION-A201000802

PATIENT
  Sex: Female

DRUGS (8)
  1. PREDNISONE [Concomitant]
     Dosage: UNK
  2. CALTRATE                           /00108001/ [Concomitant]
     Dosage: UNK
  3. ZIAC                               /01166101/ [Concomitant]
     Dosage: UNK
  4. PRACLONEL [Concomitant]
     Dosage: UNK
  5. METHOTREXATE [Concomitant]
     Dosage: UNK
  6. EFFEXOR [Concomitant]
     Dosage: UNK
  7. SOLIRIS [Suspect]
     Indication: PAROXYSMAL NOCTURNAL HAEMOGLOBINURIA
     Dosage: UNK
     Route: 042
     Dates: start: 20100101
  8. VITAMIN A [Concomitant]
     Dosage: UNK

REACTIONS (2)
  - FATIGUE [None]
  - CHILLS [None]
